FAERS Safety Report 5914907-7 (Version None)
Quarter: 2008Q4

REPORT INFORMATION
  Report Type: 
  Country: None (occurrence: None)
  Receive Date: 20081010
  Receipt Date: 20081007
  Transmission Date: 20090506
  Serious: Yes (Other)
  Sender: FDA-Public Use
  Company Number: PHEH2008US07858

PATIENT
  Sex: Male

DRUGS (8)
  1. SANDOSTATIN LAR [Suspect]
     Indication: MULTIPLE MYELOMA
     Dosage: UNK
     Dates: start: 20080718
  2. THALIDOMIDE [Concomitant]
  3. COUMADIN [Concomitant]
  4. PERCOCET [Concomitant]
  5. LASIX [Concomitant]
  6. DECADRON [Concomitant]
  7. MAGNESIUM OXIDE [Concomitant]
  8. ZOCOR [Concomitant]

REACTIONS (3)
  - BLISTER INFECTED [None]
  - CELLULITIS STAPHYLOCOCCAL [None]
  - TINEA CRURIS [None]
